FAERS Safety Report 16083668 (Version 1)
Quarter: 2019Q1

REPORT INFORMATION
  Report Type: Spontaneous
  Country: US (occurrence: US)
  Receive Date: 20190318
  Receipt Date: 20190318
  Transmission Date: 20190418
  Serious: Yes (Hospitalization, Disabling, Other)
  Sender: FDA-Public Use
  Company Number: US-GLAXOSMITHKLINE-US2019046248

PATIENT
  Age: 59 Year
  Sex: Male

DRUGS (1)
  1. NUCALA [Suspect]
     Active Substance: MEPOLIZUMAB
     Indication: PRODUCT USED FOR UNKNOWN INDICATION
     Dosage: UNK
     Route: 058
     Dates: start: 201809

REACTIONS (12)
  - Herpes virus infection [Unknown]
  - Dysstasia [Unknown]
  - Diaphragmatic disorder [Unknown]
  - Bladder catheterisation [Unknown]
  - Rehabilitation therapy [Unknown]
  - Prostatic disorder [Unknown]
  - Dysuria [Unknown]
  - Dyskinesia [Unknown]
  - Myelitis transverse [Unknown]
  - Hypoaesthesia [Unknown]
  - Paralysis [Unknown]
  - Dyspnoea [Unknown]

NARRATIVE: CASE EVENT DATE: 20181122
